FAERS Safety Report 21630307 (Version 1)
Quarter: 2022Q4

REPORT INFORMATION
  Report Type: Spontaneous
  Country: US (occurrence: US)
  Receive Date: 20221122
  Receipt Date: 20221122
  Transmission Date: 20230113
  Serious: Yes (Death, Life-Threatening)
  Sender: FDA-Public Use
  Company Number: US-drreddys-LIT/USA/22/0157306

PATIENT
  Age: 65 Year
  Sex: Female

DRUGS (12)
  1. TERBUTALINE SULFATE [Suspect]
     Active Substance: TERBUTALINE SULFATE
     Indication: Pneumomediastinum
  2. TERBUTALINE SULFATE [Suspect]
     Active Substance: TERBUTALINE SULFATE
     Indication: Pneumothorax
  3. LEVALBUTEROL [Suspect]
     Active Substance: LEVALBUTEROL
     Indication: Pneumomediastinum
  4. LEVALBUTEROL [Suspect]
     Active Substance: LEVALBUTEROL
     Indication: Pneumothorax
  5. IPRATROPIUM [Suspect]
     Active Substance: IPRATROPIUM
     Indication: Pneumomediastinum
  6. IPRATROPIUM [Suspect]
     Active Substance: IPRATROPIUM
     Indication: Pneumothorax
  7. THEOPHYLLINE [Suspect]
     Active Substance: THEOPHYLLINE
     Indication: Pneumomediastinum
  8. THEOPHYLLINE [Suspect]
     Active Substance: THEOPHYLLINE
     Indication: Pneumothorax
  9. BUDESONIDE [Suspect]
     Active Substance: BUDESONIDE
     Indication: Pneumomediastinum
  10. BUDESONIDE [Suspect]
     Active Substance: BUDESONIDE
     Indication: Pneumothorax
  11. MAGNESIUM [Suspect]
     Active Substance: MAGNESIUM
     Indication: Pneumomediastinum
  12. MAGNESIUM [Suspect]
     Active Substance: MAGNESIUM
     Indication: Pneumothorax

REACTIONS (2)
  - Death [Fatal]
  - Therapy non-responder [Unknown]
